FAERS Safety Report 13038554 (Version 2)
Quarter: 2017Q1

REPORT INFORMATION
  Report Type: Spontaneous
  Country: US (occurrence: US)
  Receive Date: 20161219
  Receipt Date: 20170215
  Transmission Date: 20170428
  Serious: Yes (Other)
  Sender: FDA-Public Use
  Company Number: US-ACADIA PHARMACEUTICALS INC.-ACA-2016-001545

PATIENT
  Sex: Female
  Weight: 99.77 kg

DRUGS (13)
  1. CLONAZEPAM. [Concomitant]
     Active Substance: CLONAZEPAM
     Indication: FEELING OF RELAXATION
     Dosage: 1 MG, QHS
  2. CLOBETASOL [Concomitant]
     Active Substance: CLOBETASOL
     Indication: PRODUCT USED FOR UNKNOWN INDICATION
  3. DONEPEZIL HYDROCHLORIDE. [Concomitant]
     Active Substance: DONEPEZIL HYDROCHLORIDE
     Indication: DEMENTIA ALZHEIMER^S TYPE
     Dosage: 23 MG, QHS
  4. NYSTATIN. [Concomitant]
     Active Substance: NYSTATIN
     Indication: PRODUCT USED FOR UNKNOWN INDICATION
  5. NUPLAZID [Suspect]
     Active Substance: PIMAVANSERIN TARTRATE
     Indication: DEMENTIA ALZHEIMER^S TYPE
  6. RISPERIDONE. [Concomitant]
     Active Substance: RISPERIDONE
     Indication: ANXIETY DISORDER
     Dosage: 0.25 MG, BID
     Route: 048
  7. NUPLAZID [Suspect]
     Active Substance: PIMAVANSERIN TARTRATE
     Indication: DELUSION
  8. DIVALPROEX [Concomitant]
     Active Substance: DIVALPROEX SODIUM
     Indication: SLEEP DISORDER
     Dosage: 250 MG, BID
  9. FERROUS SULFATE. [Concomitant]
     Active Substance: FERROUS SULFATE
     Indication: PRODUCT USED FOR UNKNOWN INDICATION
  10. NUPLAZID [Suspect]
     Active Substance: PIMAVANSERIN TARTRATE
     Indication: HALLUCINATION
     Dosage: 17 MG, BID
     Route: 048
     Dates: start: 2016, end: 20161213
  11. NAMENDA [Concomitant]
     Active Substance: MEMANTINE HYDROCHLORIDE
     Indication: DEMENTIA ALZHEIMER^S TYPE
     Dosage: 28 MG, UNK
  12. SODIUM CHLORIDE. [Concomitant]
     Active Substance: SODIUM CHLORIDE
     Indication: PRODUCT USED FOR UNKNOWN INDICATION
  13. PROCTO-MED [Concomitant]
     Indication: PRODUCT USED FOR UNKNOWN INDICATION

REACTIONS (12)
  - Obsessive-compulsive symptom [Unknown]
  - Dysstasia [Unknown]
  - Sleep disorder [Unknown]
  - Anger [Unknown]
  - Abnormal behaviour [Unknown]
  - Nocturia [Unknown]
  - Mental impairment [Unknown]
  - Fear [Unknown]
  - Mobility decreased [Unknown]
  - Off label use [Unknown]
  - Screaming [Unknown]
  - Weight increased [Unknown]

NARRATIVE: CASE EVENT DATE: 2016
